FAERS Safety Report 4939640-X (Version None)
Quarter: 2006Q1

REPORT INFORMATION
  Report Type: 
  Country: None (occurrence: None)
  Receive Date: 20060310
  Receipt Date: 20060302
  Transmission Date: 20060701
  Serious: Yes (Hospitalization)
  Sender: FDA-Public Use
  Company Number: US-JNJFOC-20060301951

PATIENT
  Sex: Male
  Weight: 81.65 kg

DRUGS (2)
  1. DURAGESIC-100 [Suspect]
     Route: 062
  2. DURAGESIC-100 [Suspect]
     Dosage: ONE 100 UG/HR PATCH PLUS ONE 25 UG/HR PATCH IN 48 HOURS
     Route: 062

REACTIONS (7)
  - ASTHENIA [None]
  - BACK PAIN [None]
  - BLOOD CHOLESTEROL INCREASED [None]
  - DEPRESSION [None]
  - FALL [None]
  - HYPERTENSION [None]
  - MUSCLE SPASMS [None]
